APPROVED DRUG PRODUCT: ISOSORBIDE DINITRATE
Active Ingredient: ISOSORBIDE DINITRATE
Strength: 5MG
Dosage Form/Route: TABLET;SUBLINGUAL
Application: A086055 | Product #001
Applicant: HIKMA INTERNATIONAL PHARMACEUTICALS LLC
Approved: Nov 2, 1987 | RLD: No | RS: No | Type: DISCN